FAERS Safety Report 18251254 (Version 7)
Quarter: 2021Q2

REPORT INFORMATION
  Report Type: Report from Study
  Country: CA (occurrence: CA)
  Receive Date: 20200910
  Receipt Date: 20210616
  Transmission Date: 20210717
  Serious: Yes (Hospitalization)
  Sender: FDA-Public Use
  Company Number: CA-BIOGEN-2020BI00921622

PATIENT
  Age: 42 Year
  Sex: Male

DRUGS (2)
  1. TYSABRI [Suspect]
     Active Substance: NATALIZUMAB
     Indication: MULTIPLE SCLEROSIS
     Dosage: INFUSED FOR OVER 1 HOUR
     Route: 042
     Dates: start: 20200615
  2. PFIZER?BIONTECH COVID?19 VACCINE [Concomitant]
     Active Substance: TOZINAMERAN
     Indication: COVID-19 PROPHYLAXIS
     Dosage: FIRST DOSE
     Route: 065
     Dates: start: 20210427

REACTIONS (8)
  - Urinary tract infection [Recovered/Resolved]
  - Cardiac disorder [Unknown]
  - Venous stenosis [Unknown]
  - Pneumonia [Recovered/Resolved]
  - Cystitis [Not Recovered/Not Resolved]
  - Headache [Unknown]
  - Radiculopathy [Unknown]
  - Bladder spasm [Unknown]

NARRATIVE: CASE EVENT DATE: 2020
